FAERS Safety Report 8484844-5 (Version None)
Quarter: 2012Q3

REPORT INFORMATION
  Report Type: 
  Country: None (occurrence: None)
  Receive Date: 20120703
  Receipt Date: 20120626
  Transmission Date: 20120928
  Serious: Yes (Hospitalization)
  Sender: FDA-Public Use
  Company Number: CA-B.I. PHARMACEUTICALS,INC./RIDGEFIELD-2012-CN-01333CN

PATIENT
  Age: 83 Year
  Sex: Male

DRUGS (1)
  1. PRADAXA [Suspect]

REACTIONS (4)
  - RENAL NEOPLASM [None]
  - TUMOUR HAEMORRHAGE [None]
  - BLOOD URINE PRESENT [None]
  - URETHRAL NEOPLASM [None]
